FAERS Safety Report 8262579-1 (Version None)
Quarter: 2012Q1

REPORT INFORMATION
  Report Type: 
  Country: None (occurrence: None)
  Receive Date: 20120327
  Receipt Date: 20080509
  Transmission Date: 20120608
  Serious: Yes (Other)
  Sender: FDA-Public Use
  Company Number: PHEH2008US04500

PATIENT
  Age: 50 Year
  Sex: Male

DRUGS (2)
  1. FOLFOX-4 (FLUOROURACIL, FOLINIC ACID, OXALIPLATIN) [Concomitant]
  2. GLEEVEC [Suspect]
     Indication: CHRONIC MYELOID LEUKAEMIA
     Dosage: 400 MG, QD, ORAL
     Route: 048

REACTIONS (1)
  - PLATELET COUNT DECREASED [None]
